FAERS Safety Report 9457512 (Version 1)
Quarter: 2013Q3

REPORT INFORMATION
  Report Type: Spontaneous
  Country: US (occurrence: None)
  Receive Date: 20130812
  Receipt Date: 20130812
  Transmission Date: 20140515
  Serious: Yes (Life-Threatening, Hospitalization)
  Sender: FDA-Public Use
  Company Number: None

PATIENT
  Age: 48 Year
  Sex: Female
  Weight: 72.58 kg

DRUGS (1)
  1. AVELOX 400 BAYER MG [Suspect]
     Indication: SINUSITIS
     Dosage: 1 PILL ONCE DAILY TAKEN BY MOUTH
     Route: 048
     Dates: start: 20130809, end: 20130809

REACTIONS (1)
  - Anaphylactic shock [None]
